FAERS Safety Report 8850316 (Version 2)
Quarter: 2013Q4

REPORT INFORMATION
  Report Type: Spontaneous
  Country: GB (occurrence: GB)
  Receive Date: 20121019
  Receipt Date: 20131007
  Transmission Date: 20140711
  Serious: Yes (Death, Congenital Anomaly, Other)
  Sender: FDA-Public Use
  Company Number: PHHY2012GB091790

PATIENT
  Age: 22 Week
  Sex: 0

DRUGS (2)
  1. ZOLPIDEM [Suspect]
     Dosage: 10 MG (MATERNAL DOSE)
     Route: 064
     Dates: end: 20120519
  2. TYSABRI [Suspect]
     Dosage: 300 MG, QW4
     Route: 064
     Dates: start: 201003, end: 20120511

REACTIONS (4)
  - Congenital cystic kidney disease [Fatal]
  - Urinary tract obstruction [Not Recovered/Not Resolved]
  - Ureteric dilatation [Not Recovered/Not Resolved]
  - Urethral valves [Not Recovered/Not Resolved]
